FAERS Safety Report 7737999-1 (Version None)
Quarter: 2011Q3

REPORT INFORMATION
  Report Type: 
  Country: None (occurrence: None)
  Receive Date: 20110908
  Receipt Date: 20110829
  Transmission Date: 20111222
  Serious: Yes (Hospitalization)
  Sender: FDA-Public Use
  Company Number: US-BAYER-201031322NA

PATIENT
  Age: 41 Year
  Sex: Female
  Weight: 77.273 kg

DRUGS (33)
  1. YASMIN [Suspect]
     Indication: PREMENSTRUAL SYNDROME
  2. SINGULAIR [Concomitant]
     Indication: MULTIPLE ALLERGIES
  3. IBUPROFEN [Concomitant]
     Indication: BACK PAIN
  4. TORADOL [Concomitant]
     Route: 030
  5. PEPCID [Concomitant]
     Route: 042
  6. DEMEROL [Concomitant]
     Route: 042
  7. MAXAIR [Concomitant]
     Indication: ASTHMA
     Route: 055
  8. CALCIUM CARBONATE [Concomitant]
     Dosage: 1200 MG + D 500
     Route: 048
  9. FENTANYL-100 [Concomitant]
  10. DROSPIRENONE AND ETHINYL ESTRADIOL [Suspect]
     Indication: MENORRHAGIA
     Dates: start: 20000101, end: 20100101
  11. ACIPHEX [Concomitant]
     Route: 048
  12. FLOVENT HFA [Concomitant]
     Dosage: 110 MCG
     Route: 055
  13. ALLEGRA D 24 HOUR [Concomitant]
     Indication: MULTIPLE ALLERGIES
  14. MORPHINE [Concomitant]
  15. ZOFRAN [Concomitant]
  16. ACIDOPHILUS [Concomitant]
  17. SKELAXIN [Concomitant]
     Indication: BACK PAIN
  18. CIPROFLOXACIN [Concomitant]
     Dosage: 750 MG
  19. YASMIN [Suspect]
     Indication: MENORRHAGIA
     Dates: start: 20000101, end: 20100101
  20. DROSPIRENONE AND ETHINYL ESTRADIOL [Suspect]
     Indication: PREMENSTRUAL SYNDROME
  21. TRICOR [Concomitant]
     Indication: BLOOD TRIGLYCERIDES ABNORMAL
     Route: 048
  22. KLONOPIN [Concomitant]
     Dosage: 1 BID PRN
     Route: 048
  23. REGLAN [Concomitant]
     Route: 042
  24. ADVIL LIQUI-GELS [Concomitant]
     Indication: MUSCLE SPASMS
     Dosage: OTC (OVER THE COUNTER)
  25. LIDODERM [Concomitant]
     Dosage: 5%
     Route: 062
  26. MAXAIR [Concomitant]
     Dosage: Q4-6 H
     Route: 055
  27. DECADRON [Concomitant]
     Route: 042
  28. WELLBUTRIN XL [Concomitant]
     Indication: DEPRESSION
     Dosage: ER 300 MG
     Route: 048
  29. FISH OIL [Concomitant]
     Route: 048
  30. PROZAC [Concomitant]
     Indication: PANIC ATTACK
  31. FLONASE [Concomitant]
     Indication: SEASONAL ALLERGY
     Route: 045
  32. HYDRATION NOS [Concomitant]
     Route: 042
  33. TORADOL [Concomitant]
     Route: 042

REACTIONS (10)
  - DECREASED APPETITE [None]
  - ABDOMINAL PAIN [None]
  - ABDOMINAL PAIN UPPER [None]
  - CHOLECYSTITIS ACUTE [None]
  - CHOLELITHIASIS [None]
  - DIZZINESS [None]
  - CHOLECYSTITIS CHRONIC [None]
  - DIARRHOEA [None]
  - VOMITING [None]
  - PYREXIA [None]
